FAERS Safety Report 5852295-5 (Version None)
Quarter: 2008Q3

REPORT INFORMATION
  Report Type: 
  Country: None (occurrence: None)
  Receive Date: 20080821
  Receipt Date: 20080813
  Transmission Date: 20090109
  Serious: Yes (Hospitalization)
  Sender: FDA-Public Use
  Company Number: US-AMGEN-QUU301391

PATIENT
  Sex: Male

DRUGS (3)
  1. ENBREL [Suspect]
     Indication: PSORIATIC ARTHROPATHY
     Route: 058
     Dates: start: 20030105
  2. ENBREL [Suspect]
     Indication: PSORIASIS
  3. REMICADE [Concomitant]

REACTIONS (2)
  - DRUG INEFFECTIVE [None]
  - VERTIGO [None]
